FAERS Safety Report 4369207-6 (Version None)
Quarter: 2004Q2

REPORT INFORMATION
  Report Type: 
  Country: None (occurrence: None)
  Receive Date: 20040525
  Receipt Date: 20040514
  Transmission Date: 20050107
  Serious: No
  Sender: FDA-Public Use
  Company Number: 2004UW10135

PATIENT
  Age: 71 Year
  Sex: Female
  Weight: 49.8957 kg

DRUGS (1)
  1. IRESSA [Suspect]
     Indication: NON-SMALL CELL LUNG CANCER
     Dosage: 250 MG DAILY PO
     Route: 048
     Dates: start: 20040101, end: 20040508

REACTIONS (10)
  - CARDIAC FAILURE CONGESTIVE [None]
  - DERMATITIS EXFOLIATIVE [None]
  - DIARRHOEA [None]
  - DYSPNOEA [None]
  - MOVEMENT DISORDER [None]
  - OPEN WOUND [None]
  - PAIN IN EXTREMITY [None]
  - VOMITING [None]
  - WEIGHT DECREASED [None]
  - WHITE BLOOD CELL COUNT INCREASED [None]
